FAERS Safety Report 7761603-X (Version None)
Quarter: 2011Q3

REPORT INFORMATION
  Report Type: 
  Country: None (occurrence: None)
  Receive Date: 20110920
  Receipt Date: 20110908
  Transmission Date: 20111222
  Serious: Yes (Hospitalization)
  Sender: FDA-Public Use
  Company Number: DE-ELI_LILLY_AND_COMPANY-DE201108004429

PATIENT
  Sex: Female
  Weight: 66 kg

DRUGS (14)
  1. DEXAMETHASONE [Concomitant]
     Indication: PROPHYLAXIS
     Dosage: UNK
     Dates: start: 20110501
  2. INSULIN [Concomitant]
     Indication: DIABETES MELLITUS
     Dosage: UNK
     Dates: start: 19980101
  3. PEMETREXED [Suspect]
     Dosage: 785 MG, UNK
     Dates: end: 20110803
  4. ASPIRIN [Concomitant]
     Dosage: UNK
     Dates: start: 20080101
  5. PEMETREXED [Suspect]
     Indication: NON-SMALL CELL LUNG CANCER
     Dosage: 830 MG, UNK
     Dates: start: 20110719
  6. NOVALGIN [Concomitant]
     Indication: PAIN
     Dosage: UNK
     Dates: start: 20110509
  7. OMEPRAZOLE [Concomitant]
     Indication: PROPHYLAXIS
     Dosage: UNK
     Dates: start: 20110512
  8. FOLIC ACID [Concomitant]
     Indication: PROPHYLAXIS
     Dosage: UNK
     Dates: start: 20110413
  9. LOSARTAN POTASSIUM [Concomitant]
     Indication: HYPERTENSION
     Dosage: UNK
     Dates: start: 20110101
  10. ALENDRON [Concomitant]
     Indication: OSTEOPOROSIS
     Dosage: UNK
     Dates: start: 20101001
  11. TEPILTA [Concomitant]
     Indication: DYSPHAGIA
     Dosage: UNK
     Dates: start: 20110518
  12. VITAMIN B-12 [Concomitant]
     Indication: PROPHYLAXIS
  13. PARACODEINE [Concomitant]
     Indication: COUGH
     Dosage: UNK
     Dates: start: 20110516
  14. L-THYROX [Concomitant]
     Indication: THYROIDECTOMY
     Dosage: UNK
     Dates: start: 19930101

REACTIONS (2)
  - CHEST PAIN [None]
  - BACK PAIN [None]
